FAERS Safety Report 10385601 (Version 1)
Quarter: 2014Q3

REPORT INFORMATION
  Report Type: Spontaneous
  Country: FR (occurrence: FR)
  Receive Date: 20140814
  Receipt Date: 20140814
  Transmission Date: 20150326
  Serious: Yes (Hospitalization)
  Sender: FDA-Public Use
  Company Number: FR-PFIZER INC-2014221424

PATIENT
  Age: 65 Year
  Sex: Female

DRUGS (1)
  1. ATORVASTATINE PFIZER [Suspect]
     Active Substance: ATORVASTATIN
     Dosage: STRENGTH 10 MG
     Dates: start: 201301

REACTIONS (15)
  - Feeling hot [Unknown]
  - Dyspnoea [Unknown]
  - Insomnia [Unknown]
  - Somnolence [Unknown]
  - Alopecia [Unknown]
  - Vomiting [Unknown]
  - Oedema peripheral [Unknown]
  - Muscle fatigue [Unknown]
  - Vertigo [Unknown]
  - Chest pain [Unknown]
  - Suffocation feeling [Unknown]
  - Visual impairment [Unknown]
  - Hypersensitivity [Unknown]
  - Paraesthesia [Unknown]
  - Blister [Unknown]

NARRATIVE: CASE EVENT DATE: 201301
